FAERS Safety Report 11458999 (Version 2)
Quarter: 2015Q4

REPORT INFORMATION
  Report Type: Spontaneous
  Country: JP (occurrence: JP)
  Receive Date: 20150904
  Receipt Date: 20151019
  Transmission Date: 20160304
  Serious: Yes (Hospitalization, Other)
  Sender: FDA-Public Use
  Company Number: JP-PFIZER INC-2015291916

PATIENT
  Age: 57 Year
  Sex: Female

DRUGS (6)
  1. CYMBALTA [Concomitant]
     Active Substance: DULOXETINE HYDROCHLORIDE
     Indication: DEPRESSION
     Dosage: 40 MG, 1X/DAY
  2. HALCION [Suspect]
     Active Substance: TRIAZOLAM
     Indication: DEPRESSION
     Dosage: 0.5 MG, 1X/DAY BEFORE BEDTIME
     Route: 048
  3. HALCION [Suspect]
     Active Substance: TRIAZOLAM
     Dosage: UNKFOUR OR SIX TRIAZOLAM 0.25-MG TABLETS
     Dates: start: 20150827
  4. REMERON [Concomitant]
     Active Substance: MIRTAZAPINE
     Indication: DEPRESSION
     Dosage: 30 MG, 1X/DAY AT BEDTIME
  5. MUCOSTA [Concomitant]
     Active Substance: REBAMIPIDE
     Indication: DEPRESSION
     Dosage: 100 MG, 1X/DAY
  6. SOLANAX [Concomitant]
     Active Substance: ALPRAZOLAM
     Indication: DEPRESSION
     Dosage: 1.2 MG, 3X/DAY

REACTIONS (3)
  - Intentional self-injury [Recovering/Resolving]
  - Seizure [Recovering/Resolving]
  - Overdose [Unknown]

NARRATIVE: CASE EVENT DATE: 20150827
